FAERS Safety Report 10582060 (Version 1)
Quarter: 2014Q4

REPORT INFORMATION
  Report Type: Report from Study
  Country: US (occurrence: US)
  Receive Date: 20141113
  Receipt Date: 20141113
  Transmission Date: 20150529
  Serious: Yes (Other)
  Sender: FDA-Public Use
  Company Number: US-ABBVIE-14K-163-1306764-00

PATIENT
  Sex: Female

DRUGS (2)
  1. HUMIRA [Suspect]
     Active Substance: ADALIMUMAB
     Indication: CROHN^S DISEASE
     Route: 042
  2. UNKNOWN MEDICATION [Concomitant]
     Active Substance: UNSPECIFIED INGREDIENT
     Indication: PRODUCT USED FOR UNKNOWN INDICATION

REACTIONS (7)
  - Stoma site ulcer [Not Recovered/Not Resolved]
  - Malaise [Recovered/Resolved]
  - Incorrect route of drug administration [Recovered/Resolved]
  - Decubitus ulcer [Not Recovered/Not Resolved]
  - Oral herpes [Not Recovered/Not Resolved]
  - Renal failure [Unknown]
  - Myocardial infarction [Unknown]
